FAERS Safety Report 21403046 (Version 1)
Quarter: 2022Q3

REPORT INFORMATION
  Report Type: Spontaneous
  Country: US (occurrence: None)
  Receive Date: 20220923
  Receipt Date: 20220923
  Transmission Date: 20221027
  Serious: Yes (unspecified)
  Sender: FDA-Public Use
  Company Number: None

PATIENT
  Age: 41 Year
  Sex: Female
  Weight: 48.5 kg

DRUGS (12)
  1. SONIDEGIB [Suspect]
     Active Substance: SONIDEGIB
  2. Albuterol 90 mcg/actuation inhaler [Concomitant]
     Dates: start: 20220420
  3. Benzonatate 200 mg capsule [Concomitant]
     Dates: start: 20220519
  4. Buspirone 15 mg tablet [Concomitant]
     Dates: start: 20200928
  5. DME Oxygen [Concomitant]
     Dates: start: 20220914
  6. LORAZEPAM [Concomitant]
     Active Substance: LORAZEPAM
     Dates: start: 20220310
  7. Morphine 15 mg tablet [Concomitant]
     Dates: start: 20220810
  8. Naloxone 4 mg/actuation Nasal Spray [Concomitant]
     Dates: start: 20220217
  9. ONDANSETRON [Concomitant]
     Active Substance: ONDANSETRON
     Dates: start: 20220519
  10. Polyethylene Glycol 17 g/dose oral powder [Concomitant]
     Dates: start: 20210320
  11. Prochlorperazine 10 mg tablet [Concomitant]
     Dates: start: 20220811
  12. Research IRB 18-007218 Sonidegib 200 mg capsule [Concomitant]
     Dates: start: 20220906

REACTIONS (1)
  - Hypercalcaemia [None]

NARRATIVE: CASE EVENT DATE: 20220923
